FAERS Safety Report 15257801 (Version 1)
Quarter: 2018Q3

REPORT INFORMATION
  Report Type: Spontaneous
  Country: US (occurrence: US)
  Receive Date: 20180718
  Receipt Date: 20180718
  Transmission Date: 20181010
  Serious: No
  Sender: FDA-Public Use
  Company Number: None

PATIENT
  Age: 76 Year
  Sex: Female
  Weight: 65.25 kg

DRUGS (18)
  1. FASLODEX [Concomitant]
     Active Substance: FULVESTRANT
  2. VITAMIN C [Concomitant]
     Active Substance: ASCORBIC ACID
  3. CURCUMIN 95 [Concomitant]
  4. FOLIC ACID. [Concomitant]
     Active Substance: FOLIC ACID
  5. BIOTIN [Concomitant]
     Active Substance: BIOTIN
  6. CALCIUM +D3 [Concomitant]
     Active Substance: CALCIUM\CHOLECALCIFEROL
  7. CENTRUM SILVER 50+WOMEN [Concomitant]
  8. COENZYME Q10 [Concomitant]
     Active Substance: UBIDECARENONE
  9. DHA ALGAL?900 [Concomitant]
  10. GRAPE SEED EXTRACT [Concomitant]
     Active Substance: DIETARY SUPPLEMENT\GRAPE SEED EXTRACT
  11. ALLEGRA ALLERGY [Concomitant]
     Active Substance: FEXOFENADINE HYDROCHLORIDE
  12. ZINC 15 [Concomitant]
  13. JOINT SUPPORT [Concomitant]
  14. RANITIDINE HCL [Concomitant]
     Active Substance: RANITIDINE HYDROCHLORIDE
  15. IBRANCE [Suspect]
     Active Substance: PALBOCICLIB
     Indication: NEOPLASM MALIGNANT
     Route: 048
     Dates: start: 20180618
  16. LISINOPRIL. [Concomitant]
     Active Substance: LISINOPRIL
  17. VENASTAT [Concomitant]
     Active Substance: HORSE CHESTNUT
  18. XGEVA [Concomitant]
     Active Substance: DENOSUMAB

REACTIONS (3)
  - Urinary tract infection [None]
  - White blood cell count decreased [None]
  - Headache [None]
